FAERS Safety Report 18694302 (Version 1)
Quarter: 2021Q1

REPORT INFORMATION
  Report Type: Spontaneous
  Country: US (occurrence: US)
  Receive Date: 20210104
  Receipt Date: 20210104
  Transmission Date: 20210419
  Serious: Yes (Death, Hospitalization)
  Sender: FDA-Public Use
  Company Number: US-FRESENIUS KABI-FK202014037

PATIENT
  Age: 13 Year
  Sex: Female

DRUGS (7)
  1. DAUNORUBICIN [Suspect]
     Active Substance: DAUNORUBICIN
     Indication: T-CELL TYPE ACUTE LEUKAEMIA
     Route: 065
     Dates: end: 201102
  2. CYTARABINE (MANUFACTURER UNKNOWN) [Suspect]
     Active Substance: CYTARABINE
     Indication: T-CELL TYPE ACUTE LEUKAEMIA
     Route: 037
     Dates: end: 201102
  3. VINCRISTINE SULFATE. [Suspect]
     Active Substance: VINCRISTINE SULFATE
     Indication: T-CELL TYPE ACUTE LEUKAEMIA
     Dosage: INITIALLY FULL DOSE, SUBSEQUENTLY RECEIVED 50 PERCENT
     Route: 065
     Dates: end: 201102
  4. NELARABINE [Suspect]
     Active Substance: NELARABINE
     Indication: T-CELL TYPE ACUTE LEUKAEMIA
     Dosage: INITIALLY FULL DOSE, SUBSEQUENTLY RECEIVED 50 PERCENT
     Route: 065
     Dates: end: 201102
  5. PREDNISONE. [Suspect]
     Active Substance: PREDNISONE
     Indication: T-CELL TYPE ACUTE LEUKAEMIA
     Route: 065
     Dates: end: 201102
  6. METHOTREXATE (MANUFACTURER UNKNOWN) [Suspect]
     Active Substance: METHOTREXATE
     Indication: T-CELL TYPE ACUTE LEUKAEMIA
     Route: 065
     Dates: end: 201102
  7. ASPARAGINASE [Suspect]
     Active Substance: ASPARAGINASE
     Indication: T-CELL TYPE ACUTE LEUKAEMIA
     Dosage: PEGYLATED ASPARAGINASE
     Route: 065
     Dates: end: 201102

REACTIONS (2)
  - Hepatosplenic T-cell lymphoma [Fatal]
  - Neuropathy peripheral [Unknown]
